FAERS Safety Report 5941408-2 (Version None)
Quarter: 2008Q4

REPORT INFORMATION
  Report Type: 
  Country: None (occurrence: None)
  Receive Date: 20081103
  Receipt Date: 20081103
  Transmission Date: 20090506
  Serious: No
  Sender: FDA-Public Use
  Company Number: None

PATIENT
  Age: 21 Year
  Sex: Male
  Weight: 77.1115 kg

DRUGS (1)
  1. REGLAN [Suspect]
     Indication: NAUSEA
     Dosage: 1 TIME IN ER IV
     Route: 042
     Dates: start: 20081009, end: 20081009

REACTIONS (5)
  - FATIGUE [None]
  - IMPAIRED WORK ABILITY [None]
  - MENTAL DISORDER [None]
  - SOMNOLENCE [None]
  - TREMOR [None]
